FAERS Safety Report 4780056-7 (Version None)
Quarter: 2005Q3

REPORT INFORMATION
  Report Type: 
  Country: None (occurrence: None)
  Receive Date: 20050914
  Receipt Date: 20050401
  Transmission Date: 20060218
  Serious: Yes (Hospitalization, Other)
  Sender: FDA-Public Use
  Company Number: 163-20785-04070263

PATIENT
  Age: 53 Year
  Sex: Female
  Weight: 52.9 kg

DRUGS (2)
  1. THALOMID [Suspect]
     Indication: NON-SMALL CELL LUNG CANCER
     Dosage: CYCLE 1 (6 WKS) 400MG QHS ON DAYS -6 THROUGH 7/CYCLE  2+ (3 WKS) 400MG QHS, ORAL
     Route: 048
     Dates: start: 20040421
  2. CPT-11 (IRINOTECAN) (INJECTION FOR INFUSION) [Suspect]
     Indication: NON-SMALL CELL LUNG CANCER
     Dosage: CYCLE 1 (6WKS) 350MG/M2 IV OVER 90 MIN DAYS 1 + 22 , CYCLE 2+ (3WKS) ON DAY 1 Q21D, INTRAVENOUS
     Route: 042
     Dates: start: 20040421

REACTIONS (5)
  - DEHYDRATION [None]
  - DIARRHOEA [None]
  - HAEMOGLOBIN DECREASED [None]
  - NAUSEA [None]
  - VOMITING [None]
